FAERS Safety Report 4735071-6 (Version None)
Quarter: 2005Q3

REPORT INFORMATION
  Report Type: 
  Country: None (occurrence: None)
  Receive Date: 20050804
  Receipt Date: 20050719
  Transmission Date: 20060218
  Serious: Yes (Hospitalization, Other)
  Sender: FDA-Public Use
  Company Number: USA050699386

PATIENT
  Age: 47 Year
  Sex: Female

DRUGS (2)
  1. ZYPREXA [Suspect]
     Dosage: 675 MG
     Dates: start: 20050521
  2. LITHIUM [Concomitant]

REACTIONS (14)
  - AIR EMBOLISM [None]
  - BILIARY TRACT DISORDER [None]
  - CHEMICAL INJURY [None]
  - DEPRESSION [None]
  - GASTROINTESTINAL DISORDER [None]
  - HEPATIC VEIN THROMBOSIS [None]
  - ILEUS [None]
  - INTENTIONAL MISUSE [None]
  - MULTIPLE DRUG OVERDOSE [None]
  - OESOPHAGEAL ULCER [None]
  - OESOPHAGITIS CHEMICAL [None]
  - ORAL INTAKE REDUCED [None]
  - PNEUMATOSIS [None]
  - SUICIDE ATTEMPT [None]
